FAERS Safety Report 25082916 (Version 1)
Quarter: 2025Q1

REPORT INFORMATION
  Report Type: Spontaneous
  Country: PT (occurrence: PT)
  Receive Date: 20250317
  Receipt Date: 20250317
  Transmission Date: 20250409
  Serious: Yes (Other)
  Sender: MERCK SHARP & DOHME LLC
  Company Number: PT-GSKCCFEMEA-Case-02228650_AE-94006

PATIENT
  Age: 50 Year
  Sex: Female

DRUGS (4)
  1. VARICELLA-ZOSTER VACCINE NOS [Suspect]
     Active Substance: VARICELLA-ZOSTER VACCINE
     Indication: Prophylaxis
     Dates: start: 2018
  2. STERILE DILUENT (WATER) [Suspect]
     Active Substance: WATER
     Indication: Prophylaxis
     Dates: start: 2018
  3. SHINGRIX [Suspect]
     Active Substance: RECOMBINANT VARICELLA ZOSTER VIRUS (VZV) GLYCOPROTEIN E
     Indication: Prophylaxis
     Dates: start: 202411
  4. SHINGRIX [Suspect]
     Active Substance: RECOMBINANT VARICELLA ZOSTER VIRUS (VZV) GLYCOPROTEIN E
     Indication: Prophylaxis
     Dates: start: 202501

REACTIONS (8)
  - Vaccination failure [Unknown]
  - Herpes zoster [Unknown]
  - Inappropriate schedule of product administration [Unknown]
  - Product administered to patient of inappropriate age [Unknown]
  - Herpes zoster [Unknown]
  - Extra dose administered [Unknown]
  - Post herpetic neuralgia [Not Recovered/Not Resolved]
  - Herpes zoster [Unknown]

NARRATIVE: CASE EVENT DATE: 20241101
